FAERS Safety Report 9534304 (Version 2)
Quarter: 2013Q3

REPORT INFORMATION
  Report Type: Spontaneous
  Country: JP (occurrence: JP)
  Receive Date: 20130918
  Receipt Date: 20130930
  Transmission Date: 20140515
  Serious: Yes (Hospitalization)
  Sender: FDA-Public Use
  Company Number: JP-GLAXOSMITHKLINE-B0923231A

PATIENT
  Age: 56 Year
  Sex: Female

DRUGS (6)
  1. VALTREX [Suspect]
     Indication: ORAL HERPES
     Dosage: 500MG TWICE PER DAY
     Route: 048
     Dates: start: 20130819, end: 20130823
  2. VALTREX [Suspect]
     Indication: HERPES ZOSTER
     Dosage: 1000MG THREE TIMES PER DAY
     Route: 048
     Dates: start: 20130823, end: 20130823
  3. ANTI-VIRAL MEDICATION [Concomitant]
     Indication: HERPES ZOSTER
     Route: 042
     Dates: start: 20130823, end: 20130824
  4. LOXONIN [Concomitant]
     Indication: PAIN
     Dosage: 120MG PER DAY
     Route: 048
     Dates: start: 20130823, end: 20130826
  5. RINDERON [Concomitant]
     Route: 065
  6. TACROLIMUS HYDRATE [Concomitant]
     Route: 065

REACTIONS (3)
  - Malaise [Recovered/Resolved]
  - Nausea [Recovered/Resolved]
  - Condition aggravated [Unknown]
